FAERS Safety Report 7291063-7 (Version None)
Quarter: 2011Q1

REPORT INFORMATION
  Report Type: 
  Country: None (occurrence: None)
  Receive Date: 20110202
  Receipt Date: 20110126
  Transmission Date: 20110831
  Serious: Yes (Other)
  Sender: FDA-Public Use
  Company Number: 2011S1000063

PATIENT
  Age: 39 Year
  Sex: Male

DRUGS (4)
  1. LIVALO [Suspect]
     Indication: HYPERLIPIDAEMIA
     Dosage: 2 MG;1X;PO
     Route: 048
     Dates: start: 20101130, end: 20110106
  2. VALSARTAN [Suspect]
     Indication: HYPERTENSION
     Dosage: 80 MG;1X;PO
     Route: 048
     Dates: start: 20100801
  3. AMLODIPINE [Concomitant]
  4. PREV MEDS [Concomitant]

REACTIONS (12)
  - HEPATIC FUNCTION ABNORMAL [None]
  - MUSCLE SPASMS [None]
  - ASPARTATE AMINOTRANSFERASE INCREASED [None]
  - GAMMA-GLUTAMYLTRANSFERASE INCREASED [None]
  - BLOOD ALKALINE PHOSPHATASE INCREASED [None]
  - MYALGIA [None]
  - BLOOD LACTATE DEHYDROGENASE INCREASED [None]
  - RHABDOMYOLYSIS [None]
  - BLOOD POTASSIUM INCREASED [None]
  - BLOOD PRESSURE INCREASED [None]
  - HYPERLIPIDAEMIA [None]
  - ALANINE AMINOTRANSFERASE INCREASED [None]
